FAERS Safety Report 5232812-9 (Version None)
Quarter: 2007Q1

REPORT INFORMATION
  Report Type: 
  Country: None (occurrence: None)
  Receive Date: 20070206
  Receipt Date: 20070206
  Transmission Date: 20070707
  Serious: No
  Sender: FDA-Public Use
  Company Number: None

PATIENT
  Sex: Male
  Weight: 93.4 kg

DRUGS (1)
  1. ULTRAVIST 300 [Suspect]
     Dosage: 300MGI/ML
     Dates: start: 20060123, end: 20060123

REACTIONS (2)
  - REFUSAL OF TREATMENT BY PATIENT [None]
  - URTICARIA [None]
